FAERS Safety Report 9242685 (Version 1)
Quarter: 2013Q2

REPORT INFORMATION
  Report Type: Spontaneous
  Country: FR (occurrence: FR)
  Receive Date: 20130419
  Receipt Date: 20130419
  Transmission Date: 20140414
  Serious: Yes (Other)
  Sender: FDA-Public Use
  Company Number: FR-BRISTOL-MYERS SQUIBB COMPANY-18782920

PATIENT
  Age: 58 Year
  Sex: Male

DRUGS (3)
  1. REYATAZ CAPS 300 MG [Suspect]
     Indication: HIV INFECTION
     Route: 048
     Dates: start: 20050930, end: 20121205
  2. NORVIR [Concomitant]
     Route: 048
     Dates: start: 20050930, end: 20121205
  3. KIVEXA [Concomitant]
     Dosage: ABACAVIR+LAMIVUDINE(600MG+ 300 MG)ORALLY.
     Route: 048
     Dates: start: 20050930

REACTIONS (2)
  - Nephrolithiasis [Unknown]
  - Renal colic [Unknown]
